FAERS Safety Report 5343235-6 (Version None)
Quarter: 2007Q2

REPORT INFORMATION
  Report Type: 
  Country: None (occurrence: None)
  Receive Date: 20070416
  Receipt Date: 20070207
  Transmission Date: 20071010
  Serious: No
  Sender: FDA-Public Use
  Company Number: 2007SP000428

PATIENT
  Age: 67 Year
  Sex: Female
  Weight: 62.5964 kg

DRUGS (3)
  1. LUNESTA [Suspect]
     Indication: INSOMNIA
     Dosage: 2 MG;QW;ORAL
     Route: 048
     Dates: start: 20070206
  2. MULTIVITAMIN [Concomitant]
  3. TRAZODONE HCL [Concomitant]

REACTIONS (2)
  - INITIAL INSOMNIA [None]
  - RHINITIS [None]
